FAERS Safety Report 11579964 (Version 3)
Quarter: 2016Q2

REPORT INFORMATION
  Report Type: Spontaneous
  Country: US (occurrence: US)
  Receive Date: 20150930
  Receipt Date: 20160628
  Transmission Date: 20160815
  Serious: Yes (Hospitalization, Other)
  Sender: FDA-Public Use
  Company Number: US-JAZZ-2015-US-013800

PATIENT
  Age: 40 Year
  Sex: Male
  Weight: 158 kg

DRUGS (9)
  1. NUVIGIL [Concomitant]
     Active Substance: ARMODAFINIL
     Indication: SOMNOLENCE
     Dosage: 150 MG, QD
     Route: 048
     Dates: start: 20150414
  2. VITAMIN D [Concomitant]
     Active Substance: CHOLECALCIFEROL
     Indication: VITAMIN D DECREASED
     Dosage: UNK
     Dates: start: 20150330
  3. XYREM [Suspect]
     Active Substance: SODIUM OXYBATE
     Indication: CATAPLEXY
     Dosage: 3 G, BID
     Route: 048
     Dates: start: 201505, end: 201509
  4. XYREM [Suspect]
     Active Substance: SODIUM OXYBATE
     Indication: NARCOLEPSY
     Dosage: 2.25 G, BID
     Route: 048
     Dates: start: 201504, end: 201505
  5. XYREM [Suspect]
     Active Substance: SODIUM OXYBATE
     Dosage: 3 G, BID
     Route: 048
     Dates: start: 201509
  6. CLOMIPHENE CITRATE. [Concomitant]
     Active Substance: CLOMIPHENE CITRATE
     Indication: BLOOD TESTOSTERONE DECREASED
     Dosage: HALF TABLET DAILY
     Dates: start: 20150511
  7. CARVEDILOL. [Concomitant]
     Active Substance: CARVEDILOL
     Indication: HYPERTENSION
     Dosage: UNK
     Dates: start: 20150330
  8. NAPROXEN. [Concomitant]
     Active Substance: NAPROXEN
     Indication: HEADACHE
     Dosage: AS NEEDED
     Dates: start: 20150824
  9. NYSTATIN. [Concomitant]
     Active Substance: NYSTATIN
     Indication: PRODUCT USED FOR UNKNOWN INDICATION
     Dosage: UNK
     Dates: start: 20150414

REACTIONS (8)
  - Hypertension [Recovering/Resolving]
  - Chest pain [Recovered/Resolved]
  - Peripheral swelling [Recovering/Resolving]
  - Pain in extremity [Unknown]
  - Weight decreased [Not Recovered/Not Resolved]
  - Ear infection [Recovered/Resolved]
  - Headache [Recovered/Resolved]
  - Cardiomegaly [Not Recovered/Not Resolved]

NARRATIVE: CASE EVENT DATE: 201504
